FAERS Safety Report 20541949 (Version 1)
Quarter: 2022Q1

REPORT INFORMATION
  Report Type: Spontaneous
  Country: CN (occurrence: CN)
  Receive Date: 20220302
  Receipt Date: 20220302
  Transmission Date: 20220423
  Serious: Yes (Other)
  Sender: FDA-Public Use
  Company Number: CN-BAYER-2021A258711

PATIENT
  Age: 53 Year
  Sex: Female
  Weight: 45 kg

DRUGS (1)
  1. XARELTO [Suspect]
     Active Substance: RIVAROXABAN
     Indication: Deep vein thrombosis
     Dosage: 15 MG, BID, PERFUSION
     Route: 050
     Dates: start: 20211025, end: 20211026

REACTIONS (7)
  - Haemothorax [Recovering/Resolving]
  - Haemoglobin decreased [Recovered/Resolved]
  - Cold sweat [Recovered/Resolved]
  - Palpitations [Recovered/Resolved]
  - Blood pressure decreased [Recovered/Resolved]
  - Sinus tachycardia [Recovered/Resolved]
  - Electrocardiogram ST-T change [Recovered/Resolved]

NARRATIVE: CASE EVENT DATE: 20211025
